FAERS Safety Report 9503092 (Version 1)
Quarter: 2013Q3

REPORT INFORMATION
  Report Type: Spontaneous
  Country: DE (occurrence: ES)
  Receive Date: 20130906
  Receipt Date: 20130906
  Transmission Date: 20140515
  Serious: Yes (Other)
  Sender: FDA-Public Use
  Company Number: ES-FRI-1000048426

PATIENT
  Age: 63 Year
  Sex: Male

DRUGS (1)
  1. MEMANTINE [Suspect]
     Indication: SENILE DEMENTIA
     Dosage: 10 MG
     Route: 048
     Dates: start: 20130725, end: 201308

REACTIONS (3)
  - Suicidal ideation [Unknown]
  - Akathisia [Not Recovered/Not Resolved]
  - Off label use [Recovered/Resolved]
